FAERS Safety Report 15297549 (Version 1)
Quarter: 2018Q3

REPORT INFORMATION
  Report Type: Report from Study
  Country: None (occurrence: AU)
  Receive Date: 20180820
  Receipt Date: 20180820
  Transmission Date: 20181010
  Serious: Yes (Other)
  Sender: FDA-Public Use
  Company Number: AU-ABBVIE-18K-008-2436196-00

PATIENT
  Sex: Female

DRUGS (2)
  1. HUMIRA [Suspect]
     Active Substance: ADALIMUMAB
     Indication: CROHN^S DISEASE
     Route: 058
     Dates: start: 20180515
  2. GLYCOPREP [Concomitant]
     Indication: COLONOSCOPY

REACTIONS (6)
  - Intestinal obstruction [Not Recovered/Not Resolved]
  - Joint swelling [Recovered/Resolved]
  - Mobility decreased [Not Recovered/Not Resolved]
  - Faeces hard [Unknown]
  - Gait disturbance [Not Recovered/Not Resolved]
  - Drug ineffective [Not Recovered/Not Resolved]

NARRATIVE: CASE EVENT DATE: 2018
